FAERS Safety Report 25226132 (Version 1)
Quarter: 2025Q2

REPORT INFORMATION
  Report Type: Spontaneous
  Country: US (occurrence: US)
  Receive Date: 20250422
  Receipt Date: 20250422
  Transmission Date: 20250717
  Serious: No
  Sender: BIOVITRUM
  Company Number: US-BIOVITRUM-2025-US-004119

PATIENT
  Age: 75 Year
  Sex: Female

DRUGS (1)
  1. VONJO [Suspect]
     Active Substance: PACRITINIB
     Indication: Myelofibrosis
     Route: 048

REACTIONS (6)
  - Intentional product use issue [Unknown]
  - Off label use [Recovered/Resolved]
  - Diarrhoea [Unknown]
  - Eye disorder [Unknown]
  - Tooth disorder [Unknown]
  - Alopecia [Unknown]
